FAERS Safety Report 8462998-4 (Version None)
Quarter: 2012Q2

REPORT INFORMATION
  Report Type: 
  Country: None (occurrence: None)
  Receive Date: 20120625
  Receipt Date: 20120619
  Transmission Date: 20120825
  Serious: Yes (Hospitalization)
  Sender: FDA-Public Use
  Company Number: DE-GLAXOSMITHKLINE-B0805973A

PATIENT
  Sex: Female
  Weight: 58 kg

DRUGS (5)
  1. ANTIBIOTICS [Concomitant]
     Dates: start: 20120501
  2. LAPATINIB [Suspect]
     Indication: BREAST CANCER
     Dosage: 500MG PER DAY
     Route: 048
     Dates: start: 20120321
  3. TRASTUZUMAB [Suspect]
     Indication: BREAST CANCER
     Dosage: 378MG EVERY 3 WEEKS
     Route: 042
     Dates: start: 20120321
  4. PACLITAXEL [Suspect]
     Indication: BREAST CANCER
     Dosage: 133MG WEEKLY
     Route: 042
     Dates: start: 20120321
  5. DOXORUBICIN HCL [Suspect]
     Indication: BREAST CANCER
     Dosage: 33MG WEEKLY
     Route: 042
     Dates: start: 20120321

REACTIONS (2)
  - PNEUMONIA [None]
  - PNEUMONITIS [None]
